FAERS Safety Report 5056448-8 (Version None)
Quarter: 2006Q3

REPORT INFORMATION
  Report Type: 
  Country: None (occurrence: None)
  Receive Date: 20060720
  Receipt Date: 20060625
  Transmission Date: 20061208
  Serious: Yes (Other)
  Sender: FDA-Public Use
  Company Number: US-SANOFI-SYNTHELABO-A03200604148

PATIENT
  Sex: Female

DRUGS (6)
  1. AMBIEN [Suspect]
     Indication: INSOMNIA
     Dosage: 10 MG, TWO TO THREE TIMES/MONTH
     Route: 048
     Dates: start: 20040101, end: 20050401
  2. AMBIEN [Suspect]
     Dosage: 10 MG,  TWO TO THREE TIMES/WEEK HS
     Route: 048
     Dates: start: 20050401, end: 20060101
  3. REMERON [Concomitant]
     Route: 048
  4. LIPITOR [Concomitant]
     Route: 048
  5. CATAPRES [Concomitant]
     Route: 048
  6. ATENOLOL [Concomitant]
     Route: 048
     Dates: start: 20050901

REACTIONS (4)
  - ATRIOVENTRICULAR BLOCK SECOND DEGREE [None]
  - CHEST PAIN [None]
  - DILATATION VENTRICULAR [None]
  - EXTRASYSTOLES [None]
